FAERS Safety Report 21091177 (Version 1)
Quarter: 2022Q3

REPORT INFORMATION
  Report Type: Spontaneous
  Country: GB (occurrence: GB)
  Receive Date: 20220716
  Receipt Date: 20220716
  Transmission Date: 20221026
  Serious: Yes (Other)
  Sender: FDA-Public Use
  Company Number: None

PATIENT
  Age: 79 Year
  Sex: Female
  Weight: 50 kg

DRUGS (9)
  1. OMEPRAZOLE [Suspect]
     Active Substance: OMEPRAZOLE
     Indication: Ill-defined disorder
     Route: 065
     Dates: start: 20220624
  2. ADCAL [Concomitant]
     Indication: Ill-defined disorder
     Dosage: 2 DOSAGE FORMS DAILY; UNIT DOSE : 1 DOSAGE FORMS , FREQUENCY : 2 , FREQUENCY TIME : 1 DAYS
     Dates: start: 20180713
  3. ASPIRIN [Concomitant]
     Active Substance: ASPIRIN
     Indication: Ill-defined disorder
     Dosage: 1 DOSAGE FORMS DAILY; TO THIN BLOOD AND PREVENT CARDIO, THERAPY DURATION : 1195  DAYS
     Dates: start: 20190320, end: 20220627
  4. ATORVASTATIN [Concomitant]
     Active Substance: ATORVASTATIN
     Indication: Ill-defined disorder
     Dosage: 1 DOSAGE FORMS DAILY;  AT NIGHT, UNIT DOSE : 1 DOSAGE FORMS , FREQUENCY : 1 , FREQUENCY TIME : 1 DAY
     Dates: start: 20190417
  5. ATORVASTATIN [Concomitant]
     Active Substance: ATORVASTATIN
     Indication: Blood cholesterol increased
  6. FELODIPINE [Concomitant]
     Active Substance: FELODIPINE
     Indication: Ill-defined disorder
     Dosage: 1 DOSAGE FORMS DAILY; ANNUAL BLOODS/BP BIRTH MONTH
     Dates: start: 20220314
  7. LATANOPROST [Concomitant]
     Active Substance: LATANOPROST
     Indication: Ill-defined disorder
     Dosage: 2 GTT DAILY; UNIT DOSE : 2 GTT, FREQUENCY : 1 , FREQUENCY TIME : 1 DAYS
     Route: 047
     Dates: start: 20190208
  8. OMEPRAZOLE [Concomitant]
     Active Substance: OMEPRAZOLE
     Indication: Ill-defined disorder
     Dosage: 1 DOSAGE FORMS DAILY; EACH MORNING,UNIT DOSE : 1 DOSAGE FORMS , FREQUENCY : 1 , FREQUENCY TIME : 1 D
     Dates: start: 20220624
  9. OMEPRAZOLE [Concomitant]
     Active Substance: OMEPRAZOLE
     Indication: Gastric pH decreased

REACTIONS (3)
  - Rectal haemorrhage [Recovered/Resolved]
  - Nausea [Recovered/Resolved]
  - Diarrhoea [Recovered/Resolved]

NARRATIVE: CASE EVENT DATE: 20220627
